FAERS Safety Report 4919871-5 (Version None)
Quarter: 2006Q1

REPORT INFORMATION
  Report Type: 
  Country: None (occurrence: None)
  Receive Date: 20060221
  Receipt Date: 20060221
  Transmission Date: 20060701
  Serious: Yes (Death, Hospitalization)
  Sender: FDA-Public Use
  Company Number: None

PATIENT
  Sex: Female
  Weight: 11.4 kg

DRUGS (2)
  1. THIOGUANINE [Suspect]
     Indication: B PRECURSOR TYPE ACUTE LEUKAEMIA
     Dosage: 560 MG
     Dates: start: 20060126, end: 20060208
  2. BACTRIM [Concomitant]

REACTIONS (7)
  - BLOOD BILIRUBIN INCREASED [None]
  - HAEMOGLOBIN DECREASED [None]
  - HEPATOMEGALY [None]
  - PLATELET COUNT DECREASED [None]
  - VENOOCCLUSIVE DISEASE [None]
  - VOMITING [None]
  - WHITE BLOOD CELL COUNT DECREASED [None]
